FAERS Safety Report 4878077-9 (Version None)
Quarter: 2006Q1

REPORT INFORMATION
  Report Type: 
  Country: None (occurrence: None)
  Receive Date: 20060110
  Receipt Date: 20051227
  Transmission Date: 20060701
  Serious: Yes (Other)
  Sender: FDA-Public Use
  Company Number: S05-GER-03316-01

PATIENT
  Age: 22 Year
  Sex: Female

DRUGS (3)
  1. CIPRALEX (ESCITALOPRAM) [Suspect]
     Indication: DEPRESSION
     Dosage: 10 MG QD PO
     Route: 048
     Dates: start: 20040628, end: 20050720
  2. ETHINYL ESTRADIOL TAB [Suspect]
     Indication: ORAL CONTRACEPTION
     Dosage: MG PO
     Route: 048
     Dates: end: 20050720
  3. LEVONORGESTREL [Suspect]
     Indication: ORAL CONTRACEPTION
     Dosage: MG  PO
     Route: 048
     Dates: end: 20050720

REACTIONS (2)
  - DRUG EXPOSURE DURING PREGNANCY [None]
  - PREGNANCY ON ORAL CONTRACEPTIVE [None]
